FAERS Safety Report 9010191 (Version 1)
Quarter: 2013Q1

REPORT INFORMATION
  Report Type: Spontaneous
  Country: US (occurrence: US)
  Receive Date: 20130111
  Receipt Date: 20130111
  Transmission Date: 20140127
  Serious: Yes (Other)
  Sender: FDA-Public Use
  Company Number: US-009507513-1301USA001725

PATIENT
  Age: 5 Year
  Sex: Female

DRUGS (3)
  1. SINGULAIR [Suspect]
     Dosage: 5 MG PER DAY
     Route: 048
  2. DACORTIN [Suspect]
     Indication: ASTHMA
     Route: 048
  3. SERETIDE [Suspect]
     Dosage: RESPIRATORY (INHALATION)

REACTIONS (2)
  - Somnambulism [Unknown]
  - Hallucination [Unknown]
